FAERS Safety Report 22083846 (Version 1)
Quarter: 2023Q1

REPORT INFORMATION
  Report Type: Report from Study
  Country: US (occurrence: US)
  Receive Date: 20230310
  Receipt Date: 20230310
  Transmission Date: 20230417
  Serious: Yes (Death)
  Sender: FDA-Public Use
  Company Number: US-SAREPTA THERAPEUTICS INC.-SRP2023-003114

PATIENT
  Age: 15 Year
  Sex: Male

DRUGS (1)
  1. CASIMERSEN [Suspect]
     Active Substance: CASIMERSEN
     Indication: Product used for unknown indication
     Dosage: 2000 MILLIGRAM, WEEKLY
     Route: 042
     Dates: start: 20210803

REACTIONS (1)
  - Death [Fatal]

NARRATIVE: CASE EVENT DATE: 20230227
